FAERS Safety Report 5776069-9 (Version None)
Quarter: 2008Q2

REPORT INFORMATION
  Report Type: 
  Country: None (occurrence: None)
  Receive Date: 20080612
  Receipt Date: 20080530
  Transmission Date: 20081010
  Serious: Yes (Death)
  Sender: FDA-Public Use
  Company Number: MPS1-1000068

PATIENT
  Age: 18 Year
  Sex: Female
  Weight: 32 kg

DRUGS (3)
  1. ALDURAZYME [Suspect]
     Indication: MUCOPOLYSACCHARIDOSIS
     Dosage: 3500 U, 1X/W, INTRAVENOUS
     Route: 042
     Dates: start: 20040331, end: 20080521
  2. FUROSEMIDE (FUROSEMIDE SODIUM) [Concomitant]
  3. ESPIRONOLACTONA (SPIRONOLACTONE) [Concomitant]

REACTIONS (5)
  - CARDIAC FAILURE [None]
  - CARDIO-RESPIRATORY ARREST [None]
  - DISEASE PROGRESSION [None]
  - PULMONARY HYPERTENSION [None]
  - RESPIRATORY FAILURE [None]
